FAERS Safety Report 23249855 (Version 1)
Quarter: 2023Q4

REPORT INFORMATION
  Report Type: Spontaneous
  Country: US (occurrence: US)
  Receive Date: 20231201
  Receipt Date: 20231201
  Transmission Date: 20240109
  Serious: No
  Sender: FDA-Public Use
  Company Number: US-ALVOGEN-2023091847

PATIENT
  Sex: Female

DRUGS (1)
  1. LEVOTHYROXINE [Suspect]
     Active Substance: LEVOTHYROXINE
     Indication: Product used for unknown indication
     Dosage: STRENGTH: 25 MCG
     Dates: start: 202302

REACTIONS (4)
  - Abdominal distension [Unknown]
  - Eructation [Unknown]
  - Abdominal discomfort [Unknown]
  - Abdominal pain [Unknown]
